FAERS Safety Report 21713868 (Version 1)
Quarter: 2022Q4

REPORT INFORMATION
  Report Type: Spontaneous
  Country: US (occurrence: None)
  Receive Date: 20221208
  Receipt Date: 20221208
  Transmission Date: 20230113
  Serious: No
  Sender: FDA-Public Use
  Company Number: None

PATIENT
  Age: 60 Year
  Sex: Male

DRUGS (1)
  1. WARFARIN SODIUM [Suspect]
     Active Substance: WARFARIN SODIUM
     Indication: Pulmonary embolism
     Dates: start: 20211201

REACTIONS (5)
  - International normalised ratio increased [None]
  - Hypophagia [None]
  - Upper respiratory tract infection [None]
  - Urinary tract infection [None]
  - Haemorrhage [None]

NARRATIVE: CASE EVENT DATE: 20221010
